FAERS Safety Report 23257957 (Version 1)
Quarter: 2023Q4

REPORT INFORMATION
  Report Type: Spontaneous
  Country: MY (occurrence: MY)
  Receive Date: 20231204
  Receipt Date: 20231204
  Transmission Date: 20240110
  Serious: Yes (Hospitalization)
  Sender: FDA-Public Use
  Company Number: MY-BEXIMCO-2023BEX00078

PATIENT
  Age: 40 Year
  Sex: Male

DRUGS (2)
  1. METFORMIN HYDROCHLORIDE [Suspect]
     Active Substance: METFORMIN HYDROCHLORIDE
     Indication: Type 2 diabetes mellitus
     Dosage: UNK
  2. METFORMIN HYDROCHLORIDE [Suspect]
     Active Substance: METFORMIN HYDROCHLORIDE
     Dosage: UNK

REACTIONS (5)
  - Gastroenteritis [Recovered/Resolved]
  - Hypovolaemic shock [Unknown]
  - Acute kidney injury [Unknown]
  - Optic ischaemic neuropathy [Unknown]
  - Metabolic acidosis [Unknown]
